FAERS Safety Report 17876348 (Version 1)
Quarter: 2020Q2

REPORT INFORMATION
  Report Type: Spontaneous
  Country: US (occurrence: US)
  Receive Date: 20200609
  Receipt Date: 20200609
  Transmission Date: 20200714
  Serious: Yes (Other)
  Sender: FDA-Public Use
  Company Number: NVSC2020US158298

PATIENT
  Age: 26 Year
  Sex: Female

DRUGS (3)
  1. PREDNISONE. [Suspect]
     Active Substance: PREDNISONE
     Indication: MEDIASTINITIS
     Dosage: 20 MG, QD
     Route: 065
  2. ITRACONAZOLE. [Suspect]
     Active Substance: ITRACONAZOLE
     Indication: MEDIASTINITIS
     Dosage: 200 MG, QD
     Route: 065
  3. RIVAROXABAN [Suspect]
     Active Substance: RIVAROXABAN
     Indication: MEDIASTINITIS
     Dosage: 20 MG, QD
     Route: 065

REACTIONS (3)
  - Mediastinitis [Unknown]
  - Disease progression [Unknown]
  - Product use in unapproved indication [Unknown]
